FAERS Safety Report 6402315-4 (Version None)
Quarter: 2009Q4

REPORT INFORMATION
  Report Type: 
  Country: None (occurrence: None)
  Receive Date: 20091015
  Receipt Date: 20091012
  Transmission Date: 20100525
  Serious: Yes (Hospitalization, Other)
  Sender: FDA-Public Use
  Company Number: PHHY2009DE33884

PATIENT
  Sex: Male

DRUGS (1)
  1. MYFORTIC [Suspect]
     Indication: STEM CELL TRANSPLANT
     Dosage: 750 MG, TID
     Route: 048
     Dates: start: 20080731

REACTIONS (5)
  - ABNORMAL BEHAVIOUR [None]
  - COMA [None]
  - DELUSION [None]
  - MECHANICAL VENTILATION [None]
  - PNEUMONIA [None]
